FAERS Safety Report 9601860 (Version 1)
Quarter: 2013Q4

REPORT INFORMATION
  Report Type: Spontaneous
  Country: US (occurrence: US)
  Receive Date: 20131007
  Receipt Date: 20131007
  Transmission Date: 20140711
  Serious: Yes (Hospitalization)
  Sender: FDA-Public Use
  Company Number: US-JNJFOC-20130915773

PATIENT
  Sex: Female
  Weight: 61.24 kg

DRUGS (2)
  1. MODICON [Suspect]
     Indication: CONTRACEPTION
     Route: 048
     Dates: start: 1979
  2. ETHINYLESTRADIOL/NORETHINDRONE [Suspect]
     Indication: CONTRACEPTION
     Route: 048

REACTIONS (6)
  - Road traffic accident [Recovered/Resolved]
  - Amenorrhoea [Recovered/Resolved]
  - Abdominal discomfort [Recovered/Resolved]
  - Drug dose omission [Recovered/Resolved]
  - Pyrexia [Recovered/Resolved]
  - Headache [Recovered/Resolved]
